FAERS Safety Report 8463677-X (Version None)
Quarter: 2012Q2

REPORT INFORMATION
  Report Type: 
  Country: None (occurrence: None)
  Receive Date: 20120625
  Receipt Date: 20120614
  Transmission Date: 20120825
  Serious: Yes (Other)
  Sender: FDA-Public Use
  Company Number: CA-ROCHE-1080841

PATIENT
  Sex: Female

DRUGS (5)
  1. PULMICORT [Concomitant]
  2. VENTOLIN [Concomitant]
  3. PREDNISONE TAB [Concomitant]
  4. OXEZE [Concomitant]
  5. XOLAIR [Suspect]
     Indication: ASTHMA
     Route: 058
     Dates: start: 20100812

REACTIONS (9)
  - RESPIRATORY TRACT INFECTION [None]
  - MALAISE [None]
  - FATIGUE [None]
  - LUNG INFECTION [None]
  - FEELING ABNORMAL [None]
  - INCREASED UPPER AIRWAY SECRETION [None]
  - COLD SWEAT [None]
  - HEADACHE [None]
  - NAUSEA [None]
